FAERS Safety Report 9241538 (Version 3)
Quarter: 2014Q2

REPORT INFORMATION
  Report Type: Report from Study
  Country: JP (occurrence: JP)
  Receive Date: 20130419
  Receipt Date: 20140404
  Transmission Date: 20141212
  Serious: Yes (Hospitalization)
  Sender: FDA-Public Use
  Company Number: JP-PFIZER INC-2013116627

PATIENT
  Age: 52 Year
  Sex: Female
  Weight: 51 kg

DRUGS (6)
  1. XALKORI [Suspect]
     Indication: NON-SMALL CELL LUNG CANCER
     Dosage: 250 MG, 2X/DAY
     Route: 048
     Dates: start: 20121226, end: 20130318
  2. WARFARIN [Concomitant]
     Dosage: 1.5-4 MG ONCE DAILY
     Route: 048
  3. PURSENNID [Concomitant]
     Dosage: 12 MG, AS NEEDED
     Route: 048
  4. MAGMITT [Concomitant]
     Dosage: 330 MG, AS NEEDED
     Route: 048
  5. CALONAL [Concomitant]
     Dosage: 400 MG, AS NEEDED
     Route: 048
  6. BIOFERMIN R [Concomitant]
     Dosage: UNK
     Route: 048
     Dates: start: 20130131, end: 20130317

REACTIONS (1)
  - Renal cyst infection [Recovered/Resolved]
